FAERS Safety Report 5798129-9 (Version None)
Quarter: 2008Q3

REPORT INFORMATION
  Report Type: 
  Country: None (occurrence: None)
  Receive Date: 20080702
  Receipt Date: 20070614
  Transmission Date: 20090109
  Serious: No
  Sender: FDA-Public Use
  Company Number: US-ASTRAZENECA-2007UW14488

PATIENT
  Age: 67 Year
  Sex: Male

DRUGS (1)
  1. ZOLADEX [Suspect]
     Indication: PROSTATE CANCER
     Route: 058
     Dates: start: 20030101

REACTIONS (2)
  - BLOOD TESTOSTERONE INCREASED [None]
  - PROSTATIC SPECIFIC ANTIGEN INCREASED [None]
